FAERS Safety Report 15723596 (Version 1)
Quarter: 2018Q4

REPORT INFORMATION
  Report Type: Spontaneous
  Country: US (occurrence: US)
  Receive Date: 20181214
  Receipt Date: 20181214
  Transmission Date: 20190205
  Serious: Yes (Hospitalization, Other)
  Sender: FDA-Public Use
  Company Number: US-SA-2018SA342354

PATIENT
  Sex: Male

DRUGS (1)
  1. LUMIZYME [Suspect]
     Active Substance: ALGLUCOSIDASE ALFA
     Indication: GLYCOGEN STORAGE DISEASE TYPE II
     Dosage: 500 MG, QW
     Route: 041
     Dates: start: 20160101

REACTIONS (4)
  - Cardiac failure [Unknown]
  - Brain injury [Unknown]
  - Seizure [Unknown]
  - Intracardiac thrombus [Unknown]
